FAERS Safety Report 4407715-X (Version None)
Quarter: 2004Q3

REPORT INFORMATION
  Report Type: 
  Country: None (occurrence: None)
  Receive Date: 20040726
  Receipt Date: 20040621
  Transmission Date: 20050211
  Serious: Yes (Congenital Anomaly, Other)
  Sender: FDA-Public Use
  Company Number: GB-BRISTOL-MYERS SQUIBB COMPANY-12621512

PATIENT

DRUGS (3)
  1. VIDEX [Suspect]
     Route: 064
     Dates: start: 20000101
  2. NEVIRAPINE [Suspect]
     Indication: HIV INFECTION
     Route: 064
     Dates: start: 20000101
  3. ZIDOVUDINE [Suspect]
     Indication: HIV INFECTION
     Route: 064
     Dates: start: 20000101

REACTIONS (4)
  - BRAIN MALFORMATION [None]
  - DRUG EXPOSURE DURING PREGNANCY [None]
  - PREGNANCY [None]
  - PULMONARY HYPOPLASIA [None]
